FAERS Safety Report 13271458 (Version 3)
Quarter: 2017Q2

REPORT INFORMATION
  Report Type: Spontaneous
  Country: US (occurrence: US)
  Receive Date: 20170227
  Receipt Date: 20170531
  Transmission Date: 20170830
  Serious: No
  Sender: FDA-Public Use
  Company Number: US-009507513-1702USA006352

PATIENT
  Age: 35 Year
  Sex: Male
  Weight: 108.84 kg

DRUGS (3)
  1. XARELTO [Concomitant]
     Active Substance: RIVAROXABAN
     Dosage: 20 MG, QD
  2. BELSOMRA [Suspect]
     Active Substance: SUVOREXANT
     Indication: SLEEP DISORDER
     Dosage: 3 DF, ONCE A DAY
     Route: 048
     Dates: start: 20160406, end: 20160406
  3. NAPROXEN. [Concomitant]
     Active Substance: NAPROXEN
     Dosage: 550 MG, BID

REACTIONS (5)
  - Abnormal sleep-related event [Not Recovered/Not Resolved]
  - Aggression [Recovered/Resolved]
  - Dyssomnia [Not Recovered/Not Resolved]
  - Sleep talking [Not Recovered/Not Resolved]
  - Memory impairment [Not Recovered/Not Resolved]

NARRATIVE: CASE EVENT DATE: 20160406
